FAERS Safety Report 4422783-7 (Version None)
Quarter: 2004Q3

REPORT INFORMATION
  Report Type: 
  Country: None (occurrence: None)
  Receive Date: 20040719
  Receipt Date: 20030523
  Transmission Date: 20050211
  Serious: Yes (Death)
  Sender: FDA-Public Use
  Company Number: M03-INT-068

PATIENT
  Age: 92 Year
  Sex: Male
  Weight: 73 kg

DRUGS (4)
  1. INTEGRILIN [Suspect]
     Indication: ACUTE CORONARY SYNDROME
     Dosage: IV BOLUS
     Route: 040
     Dates: start: 20030520, end: 20030520
  2. ASPIRIN [Concomitant]
  3. PLAVIX [Concomitant]
  4. HEPARIN [Concomitant]

REACTIONS (2)
  - GASTROINTESTINAL HAEMORRHAGE [None]
  - HYPOTENSION [None]
